FAERS Safety Report 10382626 (Version 1)
Quarter: 2014Q3

REPORT INFORMATION
  Report Type: Spontaneous
  Country: US (occurrence: US)
  Receive Date: 20140813
  Receipt Date: 20140813
  Transmission Date: 20150326
  Serious: Yes (Other)
  Sender: FDA-Public Use
  Company Number: US-SA-2014SA009181

PATIENT
  Age: 85 Year
  Sex: Female

DRUGS (4)
  1. MULTAQ [Suspect]
     Active Substance: DRONEDARONE
     Indication: ATRIAL FIBRILLATION
     Route: 065
     Dates: start: 20130731
  2. ATENOLOL. [Suspect]
     Active Substance: ATENOLOL
     Route: 065
  3. ATENOLOL. [Suspect]
     Active Substance: ATENOLOL
     Route: 065
  4. VALIUM [Concomitant]
     Active Substance: DIAZEPAM

REACTIONS (6)
  - Dyspnoea [Not Recovered/Not Resolved]
  - Adverse event [Not Recovered/Not Resolved]
  - Dizziness [Not Recovered/Not Resolved]
  - Hypertension [Not Recovered/Not Resolved]
  - Depression [Not Recovered/Not Resolved]
  - Bradycardia [Not Recovered/Not Resolved]
